FAERS Safety Report 8888434 (Version 1)
Quarter: 2012Q4

REPORT INFORMATION
  Report Type: 
  Country: US (occurrence: US)
  Receive Date: 20121106
  Receipt Date: 20121106
  Transmission Date: 20130627
  Serious: No
  Sender: FDA-Public Use
  Company Number: US-BAYER-2012-113349

PATIENT
  Sex: Female

DRUGS (1)
  1. MIRENA [Suspect]
     Dosage: 20 mg/24hr, CONT
     Route: 015

REACTIONS (3)
  - Adnexa uteri pain [None]
  - Pain in extremity [None]
  - No adverse event [None]
